FAERS Safety Report 5080601-0 (Version None)
Quarter: 2006Q3

REPORT INFORMATION
  Report Type: 
  Country: None (occurrence: None)
  Receive Date: 20060815
  Receipt Date: 20060720
  Transmission Date: 20061208
  Serious: Yes (Hospitalization)
  Sender: FDA-Public Use
  Company Number: JP-JPN-A200602747

PATIENT
  Age: 86 Year
  Sex: Female

DRUGS (6)
  1. PAXIL [Suspect]
     Indication: DEPRESSIVE SYMPTOM
     Dosage: 10MG PER DAY
     Route: 048
     Dates: start: 20060707, end: 20060719
  2. SPIEGEL [Concomitant]
     Route: 048
  3. AMARYL [Concomitant]
     Indication: DIABETES MELLITUS
     Dosage: 2MG PER DAY
     Route: 048
     Dates: start: 20060622
  4. GLUCOBAY [Concomitant]
     Indication: DIABETES MELLITUS
     Dosage: 150MG PER DAY
     Route: 048
     Dates: start: 20060622
  5. ALOSENN [Concomitant]
     Indication: CONSTIPATION
     Dosage: .5G PER DAY
     Route: 048
     Dates: start: 20060622
  6. SLOW-K [Concomitant]
     Indication: HYPOKALAEMIA
     Dosage: 2UNIT PER DAY
     Route: 048
     Dates: start: 20060706

REACTIONS (5)
  - BLOOD PARATHYROID HORMONE INCREASED [None]
  - HYPERCALCAEMIA [None]
  - HYPOKALAEMIA [None]
  - MUSCULAR WEAKNESS [None]
  - SPEECH DISORDER [None]
